FAERS Safety Report 4666296-6 (Version None)
Quarter: 2005Q2

REPORT INFORMATION
  Report Type: 
  Country: None (occurrence: None)
  Receive Date: 20050518
  Receipt Date: 20050506
  Transmission Date: 20051028
  Serious: Yes (Hospitalization, Other)
  Sender: FDA-Public Use
  Company Number: 2005062481

PATIENT
  Age: 64 Year
  Sex: Male
  Weight: 64 kg

DRUGS (2)
  1. CELEBREX [Suspect]
     Indication: PSORIATIC ARTHROPATHY
     Dosage: 200 MG (200 MG, 1 IN 1 D), ORAL
     Route: 048
     Dates: start: 20040814, end: 20050117
  2. CO-PROXAMOL (DEXTROPROPOXYPHENE HYDROCHLORIDE, PARACETAMOL) [Concomitant]

REACTIONS (8)
  - ASTHENIA [None]
  - BLINDNESS TRANSIENT [None]
  - BLINDNESS UNILATERAL [None]
  - CAROTID ARTERY STENOSIS [None]
  - EYE PAIN [None]
  - NERVE COMPRESSION [None]
  - PARAESTHESIA [None]
  - TRANSIENT ISCHAEMIC ATTACK [None]
